FAERS Safety Report 9515792 (Version 1)
Quarter: 2013Q3

REPORT INFORMATION
  Report Type: Spontaneous
  Country: IT (occurrence: IT)
  Receive Date: 20130911
  Receipt Date: 20130911
  Transmission Date: 20140515
  Serious: Yes (Life-Threatening)
  Sender: FDA-Public Use
  Company Number: IT-BAYER-2013-109215

PATIENT
  Age: 10 Week
  Sex: Female

DRUGS (1)
  1. ULTRAVIST [Suspect]
     Indication: ARTERIOGRAM CORONARY
     Dosage: 1 DF, ONCE
     Route: 013
     Dates: start: 20130903, end: 20130903

REACTIONS (4)
  - Bronchospasm [Recovered/Resolved]
  - Rash [Recovered/Resolved]
  - Choking sensation [Recovered/Resolved]
  - Hypotension [Recovered/Resolved]
